FAERS Safety Report 19261921 (Version 1)
Quarter: 2021Q2

REPORT INFORMATION
  Report Type: Spontaneous
  Country: BE (occurrence: BE)
  Receive Date: 20210516
  Receipt Date: 20210516
  Transmission Date: 20210717
  Serious: Yes (Death, Other)
  Sender: FDA-Public Use
  Company Number: BE-AUROBINDO-AUR-APL-2019-100528

PATIENT
  Age: 38 Year
  Sex: Female

DRUGS (3)
  1. VENLAFAXINE [Suspect]
     Active Substance: VENLAFAXINE HYDROCHLORIDE
     Indication: PRODUCT USED FOR UNKNOWN INDICATION
     Dosage: 4200MG
     Route: 048
  2. VENLAFAXINE [Suspect]
     Active Substance: VENLAFAXINE HYDROCHLORIDE
     Dosage: UNK
     Route: 048
  3. ALCOHOL. [Suspect]
     Active Substance: ALCOHOL
     Indication: PRODUCT USED FOR UNKNOWN INDICATION
     Dosage: UNK
     Route: 065

REACTIONS (18)
  - Acute left ventricular failure [Fatal]
  - Sinus rhythm [Unknown]
  - Ventricular tachycardia [Unknown]
  - Overdose [Fatal]
  - Liver injury [Unknown]
  - Pneumococcal sepsis [Unknown]
  - Cardiac failure acute [Unknown]
  - Arrhythmia [Unknown]
  - Serotonin syndrome [Unknown]
  - Atrial fibrillation [Unknown]
  - Acute respiratory distress syndrome [Unknown]
  - Acute kidney injury [Unknown]
  - Hypoxia [Fatal]
  - Pneumonia [Unknown]
  - Rhabdomyolysis [Unknown]
  - Cell death [Unknown]
  - Hypotension [Unknown]
  - Electrocardiogram ST segment abnormal [Unknown]
